FAERS Safety Report 5375586-3 (Version None)
Quarter: 2007Q2

REPORT INFORMATION
  Report Type: 
  Country: None (occurrence: None)
  Receive Date: 20070629
  Receipt Date: 20070621
  Transmission Date: 20071010
  Serious: Yes (Other)
  Sender: FDA-Public Use
  Company Number: CA-PFIZER INC-2007051807

PATIENT
  Age: 81 Year
  Sex: Female

DRUGS (5)
  1. LYRICA [Suspect]
     Route: 048
  2. GLYBURIDE [Concomitant]
  3. ANTIHYPERTENSIVES [Concomitant]
  4. ANTI-DIABETICS [Concomitant]
  5. CHOLESTEROL- AND TRIGLYCERIDE REDUCERS [Concomitant]

REACTIONS (4)
  - OEDEMA PERIPHERAL [None]
  - PROTEINURIA [None]
  - SPINAL CORD OEDEMA [None]
  - WEIGHT INCREASED [None]
